FAERS Safety Report 7271888-4 (Version None)
Quarter: 2011Q1

REPORT INFORMATION
  Report Type: 
  Country: None (occurrence: None)
  Receive Date: 20110203
  Receipt Date: 20110125
  Transmission Date: 20110831
  Serious: Yes (Hospitalization, Other)
  Sender: FDA-Public Use
  Company Number: US-PFIZER INC-US-WYE-H18437310

PATIENT
  Sex: Female
  Weight: 77.1 kg

DRUGS (8)
  1. PRISTIQ [Suspect]
     Dosage: 100.0 MG, 1X/DAY
     Route: 065
  2. LISINOPRIL [Suspect]
     Indication: HYPERTENSION
     Dosage: 20.0 MG, 1X/DAY
     Route: 065
     Dates: start: 20100101
  3. ACETYLSALICYLIC ACID [Concomitant]
     Route: 065
  4. LORAZEPAM [Concomitant]
     Route: 065
  5. VITAMIN D [Concomitant]
     Route: 065
  6. METOPROLOL [Suspect]
     Indication: HEART RATE INCREASED
     Dosage: 25.0 MG, 1X/DAY
     Route: 065
     Dates: start: 20101019
  7. PRISTIQ [Suspect]
     Indication: DEPRESSION
     Dosage: 50.0 MG, 1X/DAY
     Route: 065
  8. COLACE [Concomitant]
     Route: 065

REACTIONS (7)
  - HEART RATE INCREASED [None]
  - DRUG EFFECT DECREASED [None]
  - HYPERTENSION [None]
  - DEPRESSION [None]
  - COLITIS ISCHAEMIC [None]
  - CONDITION AGGRAVATED [None]
  - DIARRHOEA [None]
